FAERS Safety Report 19609798 (Version 2)
Quarter: 2021Q3

REPORT INFORMATION
  Report Type: Spontaneous
  Country: US (occurrence: US)
  Receive Date: 20210726
  Receipt Date: 20210902
  Transmission Date: 20211014
  Serious: No
  Sender: FDA-Public Use
  Company Number: US-ASTRAZENECA-2021A596089

PATIENT
  Age: 27873 Day
  Sex: Male
  Weight: 93.4 kg

DRUGS (8)
  1. FENOFIBRATE. [Concomitant]
     Active Substance: FENOFIBRATE
  2. BYDUREON BCISE [Suspect]
     Active Substance: EXENATIDE
     Route: 058
  3. BYDUREON [Suspect]
     Active Substance: EXENATIDE
     Route: 058
  4. LISINOPRIL. [Concomitant]
     Active Substance: LISINOPRIL
  5. METFORMIN [Concomitant]
     Active Substance: METFORMIN HYDROCHLORIDE
  6. ALFUZOSIN [Concomitant]
     Active Substance: ALFUZOSIN
  7. ROSUVASTATIN. [Concomitant]
     Active Substance: ROSUVASTATIN
  8. METOPROLOL. [Concomitant]
     Active Substance: METOPROLOL

REACTIONS (3)
  - Injection site pain [Unknown]
  - Incorrect dose administered by device [Unknown]
  - Device malfunction [Unknown]

NARRATIVE: CASE EVENT DATE: 20210702
